FAERS Safety Report 6240715-6 (Version None)
Quarter: 2009Q2

REPORT INFORMATION
  Report Type: 
  Country: None (occurrence: None)
  Receive Date: 20090623
  Receipt Date: 20090218
  Transmission Date: 20091009
  Serious: No
  Sender: FDA-Public Use
  Company Number: US-ASTRAZENECA-2009UW04590

PATIENT
  Age: 86 Year
  Sex: Male

DRUGS (1)
  1. PULMICORT FLEXHALER [Suspect]
     Dosage: 180 MCG, ONE DOSE
     Route: 055

REACTIONS (2)
  - BLOOD PRESSURE SYSTOLIC DECREASED [None]
  - SYNCOPE [None]
